FAERS Safety Report 5725335-1 (Version None)
Quarter: 2008Q2

REPORT INFORMATION
  Report Type: 
  Country: None (occurrence: None)
  Receive Date: 20080501
  Receipt Date: 20080423
  Transmission Date: 20081010
  Serious: Yes (Death)
  Sender: FDA-Public Use
  Company Number: US-PFIZER INC-2008035883

PATIENT
  Sex: Female

DRUGS (3)
  1. GEODON [Suspect]
     Indication: MOOD ALTERED
  2. ALL OTHER THERAPEUTIC PRODUCTS [Concomitant]
  3. ZYPREXA [Concomitant]

REACTIONS (1)
  - HEPATIC FAILURE [None]
